FAERS Safety Report 6424852-9 (Version None)
Quarter: 2009Q4

REPORT INFORMATION
  Report Type: 
  Country: None (occurrence: None)
  Receive Date: 20091103
  Receipt Date: 20091023
  Transmission Date: 20100525
  Serious: Yes (Hospitalization)
  Sender: FDA-Public Use
  Company Number: CZ-WYE-H11870309

PATIENT
  Sex: Female

DRUGS (13)
  1. CORDARONE [Suspect]
     Indication: ATRIAL FIBRILLATION
     Route: 048
     Dates: start: 20090701, end: 20091009
  2. ANOPYRIN [Concomitant]
     Dosage: UNSPECIFIED
     Route: 048
  3. MILURIT [Concomitant]
  4. NEUROL /CZE/ [Concomitant]
     Dosage: UNSPECIFIED
     Route: 048
  5. DIGOXIN [Concomitant]
     Dosage: UNSPECIFIED
     Route: 048
  6. OXAZEPAM [Concomitant]
  7. VEROSPIRON [Concomitant]
  8. WARFARIN SODIUM [Concomitant]
  9. PRESTARIUM [Concomitant]
  10. FURON [Concomitant]
  11. LEXAURIN [Concomitant]
  12. GOPTEN ^KNOLL^ [Concomitant]
     Dosage: UNSPECIFIED
     Route: 048
  13. CARVEDILOL [Concomitant]

REACTIONS (2)
  - GENERAL PHYSICAL HEALTH DETERIORATION [None]
  - HYPOTHYROIDISM [None]
